FAERS Safety Report 7884400-3 (Version None)
Quarter: 2011Q4

REPORT INFORMATION
  Report Type: 
  Country: None (occurrence: None)
  Receive Date: 20111102
  Receipt Date: 20111020
  Transmission Date: 20120403
  Serious: Yes (Hospitalization)
  Sender: FDA-Public Use
  Company Number: DE-ROCHE-765762

PATIENT
  Sex: Female
  Weight: 79 kg

DRUGS (16)
  1. COPEGUS [Suspect]
     Indication: HEPATITIS C
     Route: 048
     Dates: start: 20110209, end: 20110301
  2. PANTOPRAZOLE [Concomitant]
  3. ASPIRIN [Concomitant]
  4. CALCIUM [Concomitant]
  5. CHLORHEXAMED [Concomitant]
  6. ARANESP [Concomitant]
     Route: 058
  7. MYCOPHENOLATE MOFETIL (CELLCEPT) [Concomitant]
  8. METOPROLOL SUCCINATE [Concomitant]
  9. LEVOTHYROXINE SODIUM [Concomitant]
  10. COPEGUS [Suspect]
     Route: 048
  11. CALCITRIOL [Concomitant]
  12. CERTICAN [Concomitant]
  13. TORSEMIDE [Concomitant]
  14. PEG-INTERFERON ALFA 2A [Suspect]
     Indication: HEPATITIS C
     Route: 058
  15. URSO FALK [Concomitant]
  16. LERCANIDIPINE [Concomitant]

REACTIONS (2)
  - HAEMOLYSIS [None]
  - HAEMOGLOBIN DECREASED [None]
